FAERS Safety Report 13678844 (Version 2)
Quarter: 2017Q3

REPORT INFORMATION
  Report Type: Spontaneous
  Country: DE (occurrence: DE)
  Receive Date: 20170622
  Receipt Date: 20170713
  Transmission Date: 20171127
  Serious: Yes (Life-Threatening, Hospitalization, Other)
  Sender: FDA-Public Use
  Company Number: DE-AMGEN-DEUSP2017092583

PATIENT
  Age: 56 Year
  Sex: Female
  Weight: 55 kg

DRUGS (3)
  1. VIGANTOLETTEN [Concomitant]
     Active Substance: CHOLECALCIFEROL
     Indication: OSTEOPOROSIS
     Dosage: 1000 UNK, QD
  2. PROLIA [Suspect]
     Active Substance: DENOSUMAB
     Indication: OSTEOPOROSIS
     Dosage: UNK UNK, Q6MO
     Route: 058
     Dates: start: 201606, end: 201706
  3. METOPROLOL. [Concomitant]
     Active Substance: METOPROLOL
     Indication: MIGRAINE
     Dosage: 50 MG, QD
     Dates: end: 201706

REACTIONS (11)
  - Ovarian cancer stage III [Not Recovered/Not Resolved]
  - Mesothelioma [Unknown]
  - Leiomyoma [Unknown]
  - Scar [Unknown]
  - Haemorrhage [Unknown]
  - Cystitis klebsiella [Unknown]
  - Hepatic cyst [Unknown]
  - Cervicitis [Unknown]
  - Adenomyosis [Unknown]
  - Pleural effusion [Unknown]
  - Ovarian enlargement [Unknown]

NARRATIVE: CASE EVENT DATE: 20170424
